FAERS Safety Report 12696707 (Version 2)
Quarter: 2016Q3

REPORT INFORMATION
  Report Type: Spontaneous
  Country: JP (occurrence: JP)
  Receive Date: 20160830
  Receipt Date: 20160926
  Transmission Date: 20161109
  Serious: Yes (Hospitalization)
  Sender: FDA-Public Use
  Company Number: JP-VIFOR (INTERNATIONAL) INC.-VIT-2016-04458

PATIENT
  Age: 90 Year
  Sex: Female

DRUGS (9)
  1. MAGMITT [Concomitant]
     Active Substance: MAGNESIUM OXIDE
     Route: 048
  2. AZILVA [Concomitant]
     Active Substance: AZILSARTAN KAMEDOXOMIL
     Route: 048
  3. ALDACTONE A [Suspect]
     Active Substance: SPIRONOLACTONE
     Indication: PRODUCT USED FOR UNKNOWN INDICATION
     Route: 048
     Dates: start: 20140201
  4. MEMARY [Concomitant]
     Active Substance: MEMANTINE HYDROCHLORIDE
     Route: 048
     Dates: start: 20160128
  5. DONEPEZIL HYDROCHLORIDE. [Concomitant]
     Active Substance: DONEPEZIL HYDROCHLORIDE
     Route: 048
  6. MIRCERA [Suspect]
     Active Substance: METHOXY POLYETHYLENE GLYCOL-EPOETIN BETA
     Indication: NEPHROGENIC ANAEMIA
     Route: 058
     Dates: start: 20160616, end: 20160714
  7. NIFELANTERN CR [Suspect]
     Active Substance: NIFEDIPINE
     Indication: PRODUCT USED FOR UNKNOWN INDICATION
     Route: 048
  8. MEPTIN [Concomitant]
     Active Substance: PROCATEROL HYDROCHLORIDE
     Route: 048
  9. TEPRENONE [Concomitant]
     Active Substance: TEPRENONE
     Route: 048

REACTIONS (1)
  - Platelet count decreased [Not Recovered/Not Resolved]

NARRATIVE: CASE EVENT DATE: 20160714
